FAERS Safety Report 4476291-8 (Version None)
Quarter: 2004Q4

REPORT INFORMATION
  Report Type: 
  Country: None (occurrence: None)
  Receive Date: 20041016
  Receipt Date: 20041007
  Transmission Date: 20050328
  Serious: Yes (Hospitalization)
  Sender: FDA-Public Use
  Company Number: US-MERCK-0410USA00957

PATIENT
  Age: 78 Year
  Sex: Male

DRUGS (3)
  1. DIDANOSINE [Suspect]
     Route: 065
  2. CRIXIVAN [Suspect]
     Indication: HIV INFECTION
     Route: 065
  3. ZIDOVUDINE [Suspect]
     Route: 065

REACTIONS (1)
  - CARDIAC FAILURE ACUTE [None]
